FAERS Safety Report 19814127 (Version 1)
Quarter: 2021Q3

REPORT INFORMATION
  Report Type: Spontaneous
  Country: US (occurrence: US)
  Receive Date: 20210910
  Receipt Date: 20210910
  Transmission Date: 20211014
  Serious: No
  Sender: FDA-Public Use
  Company Number: None

PATIENT
  Age: 21 Month
  Sex: Female
  Weight: 9.18 kg

DRUGS (1)
  1. CEPHALEXIN FOR ORAL SUSPENSION [Suspect]
     Active Substance: CEPHALEXIN
     Indication: INFECTED CYST
     Dosage: ?          QUANTITY:5 TEASPOON(S);?
     Route: 048
     Dates: start: 20210908, end: 20210908

REACTIONS (3)
  - Pyrexia [None]
  - Somnolence [None]
  - Chills [None]

NARRATIVE: CASE EVENT DATE: 20210909
